FAERS Safety Report 22785871 (Version 2)
Quarter: 2023Q4

REPORT INFORMATION
  Report Type: Report from Study
  Country: US (occurrence: US)
  Receive Date: 20230804
  Receipt Date: 20231030
  Transmission Date: 20240110
  Serious: Yes (Other)
  Sender: FDA-Public Use
  Company Number: US-ABBVIE-5353071

PATIENT
  Age: 49 Year
  Sex: Male

DRUGS (1)
  1. SKYRIZI [Suspect]
     Active Substance: RISANKIZUMAB-RZAA
     Indication: Crohn^s disease
     Route: 058
     Dates: start: 20221103, end: 2023

REACTIONS (5)
  - Blindness [Unknown]
  - Frequent bowel movements [Unknown]
  - Weight decreased [Unknown]
  - Brain neoplasm [Unknown]
  - Optic nerve neoplasm [Unknown]

NARRATIVE: CASE EVENT DATE: 20230601
